FAERS Safety Report 7394023-0 (Version None)
Quarter: 2011Q2

REPORT INFORMATION
  Report Type: 
  Country: None (occurrence: None)
  Receive Date: 20110405
  Receipt Date: 20100827
  Transmission Date: 20111010
  Serious: No
  Sender: FDA-Public Use
  Company Number: US-AMGEN-KDL434444

PATIENT
  Sex: Female

DRUGS (5)
  1. CARBOPLATIN [Concomitant]
     Dosage: UNK UNK, UNK
  2. CLONAZEPAM [Concomitant]
     Dosage: UNK UNK, UNK
  3. PACLITAXEL [Concomitant]
     Dosage: UNK UNK, UNK
  4. FAMOTIDINE [Concomitant]
     Dosage: UNK UNK, UNK
  5. NEULASTA [Suspect]
     Indication: CHEMOTHERAPY
     Dosage: 6 MG, UNK
     Dates: start: 20100821

REACTIONS (3)
  - FATIGUE [None]
  - ANXIETY [None]
  - WHITE BLOOD CELL COUNT ABNORMAL [None]
